FAERS Safety Report 21349201 (Version 1)
Quarter: 2022Q3

REPORT INFORMATION
  Report Type: Report from Study
  Country: CN (occurrence: CN)
  Receive Date: 20220919
  Receipt Date: 20220919
  Transmission Date: 20221026
  Serious: Yes (Hospitalization)
  Sender: FDA-Public Use
  Company Number: CN-NOVARTISPH-NVSC2019CN105203

PATIENT
  Age: 62 Year
  Sex: Male
  Weight: 78 kg

DRUGS (20)
  1. TISLELIZUMAB [Suspect]
     Active Substance: TISLELIZUMAB
     Indication: Non-small cell lung cancer
     Dosage: 200 MG, Q3W
     Route: 042
     Dates: start: 20181127, end: 20190619
  2. TISLELIZUMAB [Suspect]
     Active Substance: TISLELIZUMAB
     Dosage: 200 MG, Q3W
     Route: 042
     Dates: start: 20190820
  3. PEMETREXED [Suspect]
     Active Substance: PEMETREXED
     Indication: Non-small cell lung cancer
     Dosage: 500 MG, Q3W
     Route: 042
     Dates: start: 20181127, end: 20190619
  4. PEMETREXED [Suspect]
     Active Substance: PEMETREXED
     Dosage: 500 MG, Q3W
     Route: 042
     Dates: start: 20190820
  5. CARBOPLATIN [Suspect]
     Active Substance: CARBOPLATIN
     Indication: Non-small cell lung cancer
     Dosage: AUC 5, Q3W
     Route: 042
     Dates: start: 20181127, end: 20190201
  6. DEXAMETHASONE [Concomitant]
     Active Substance: DEXAMETHASONE
     Indication: Allergy prophylaxis
     Dosage: 4.5 MG, BID
     Route: 048
     Dates: start: 20190618, end: 20190620
  7. ESOMEPRAZOLE MAGNESIUM [Concomitant]
     Active Substance: ESOMEPRAZOLE MAGNESIUM
     Indication: Gastritis prophylaxis
     Dosage: 20 MG, QD
     Route: 048
     Dates: start: 20190618, end: 20190620
  8. MAGNESIUM ISOGLYCYRRHIZINATE [Concomitant]
     Active Substance: MAGNESIUM ISOGLYCYRRHIZINATE
     Indication: Prophylaxis
     Dosage: 200 MG, QD
     Route: 042
     Dates: start: 20190619, end: 20190619
  9. PALONOSETRON HYDROCHLORIDE [Concomitant]
     Active Substance: PALONOSETRON HYDROCHLORIDE
     Indication: Gastrointestinal disorder prophylaxis
     Dosage: 0.25 MG, QD
     Route: 042
     Dates: start: 20190619, end: 20190619
  10. LANSOPRAZOLE [Concomitant]
     Active Substance: LANSOPRAZOLE
     Indication: Gastritis prophylaxis
     Dosage: 30 MG, BID
     Route: 048
     Dates: start: 20190619, end: 20190619
  11. CEFTIZOXIME [Concomitant]
     Active Substance: CEFTIZOXIME
     Indication: Pyrexia
     Dosage: 2 G, BID
     Route: 042
     Dates: start: 20190623, end: 20190626
  12. DYPHYLLINE [Concomitant]
     Active Substance: DYPHYLLINE
     Indication: Pyrexia
     Dosage: 0.5 G, QD
     Route: 042
     Dates: start: 20190623, end: 20190626
  13. BROMHEXINE [Concomitant]
     Active Substance: BROMHEXINE
     Indication: Respiratory rate decreased
     Dosage: 12 MG, QD
     Route: 042
     Dates: start: 20190623, end: 20190623
  14. VITAMIN B6 [Concomitant]
     Active Substance: PYRIDOXINE HYDROCHLORIDE
     Indication: Nutritional supplementation
     Dosage: 0.2 G, QD
     Route: 042
     Dates: start: 20190623, end: 20190623
  15. VITAMIN C [Concomitant]
     Active Substance: ASCORBIC ACID
     Indication: Nutritional supplementation
     Dosage: 2 G, QD
     Route: 042
     Dates: start: 20190623, end: 20190623
  16. CEFUROXIME SODIUM [Concomitant]
     Active Substance: CEFUROXIME SODIUM
     Indication: Pyrexia
     Dosage: 2.25 G, QD
     Route: 042
     Dates: start: 20190627, end: 20190628
  17. CEFUROXIME SODIUM [Concomitant]
     Active Substance: CEFUROXIME SODIUM
     Dosage: 2.25 G, QD
     Route: 042
     Dates: start: 20190701, end: 20190708
  18. LEVOFLOXACIN [Concomitant]
     Active Substance: LEVOFLOXACIN
     Indication: Pyrexia
     Dosage: 500 MG, QD
     Route: 042
     Dates: start: 20190627, end: 20190628
  19. LEVOFLOXACIN [Concomitant]
     Active Substance: LEVOFLOXACIN
     Dosage: 500 MG, QD
     Route: 042
     Dates: start: 20190701, end: 20190708
  20. ONDANSETRON HYDROCHLORIDE [Concomitant]
     Active Substance: ONDANSETRON HYDROCHLORIDE
     Indication: Nutritional supplementation
     Dosage: 0.2 G, QD
     Route: 048
     Dates: start: 20190623, end: 20190623

REACTIONS (2)
  - Pleural effusion [Recovered/Resolved]
  - Interstitial lung disease [Recovered/Resolved]

NARRATIVE: CASE EVENT DATE: 20190710
